FAERS Safety Report 6040585-5 (Version None)
Quarter: 2009Q1

REPORT INFORMATION
  Report Type: 
  Country: None (occurrence: None)
  Receive Date: 20090116
  Receipt Date: 20080410
  Transmission Date: 20090719
  Serious: No
  Sender: FDA-Public Use
  Company Number: US-BRISTOL-MYERS SQUIBB COMPANY-14145940

PATIENT
  Age: 63 Year
  Sex: Male
  Weight: 113 kg

DRUGS (8)
  1. ABILIFY [Suspect]
     Indication: BIPOLAR I DISORDER
     Dates: start: 20080305
  2. ADDERALL 10 [Concomitant]
  3. NAPROXEN [Concomitant]
  4. NEXIUM [Concomitant]
  5. ZEGERID [Concomitant]
  6. AVODART [Concomitant]
  7. SEROQUEL [Concomitant]
  8. LAMICTAL [Concomitant]

REACTIONS (1)
  - MUSCLE SPASMS [None]
